FAERS Safety Report 5635957-4 (Version None)
Quarter: 2008Q1

REPORT INFORMATION
  Report Type: 
  Country: None (occurrence: None)
  Receive Date: 20080224
  Receipt Date: 20080213
  Transmission Date: 20080703
  Serious: Yes (Hospitalization)
  Sender: FDA-Public Use
  Company Number: PHEH2008US01791

PATIENT

DRUGS (2)
  1. ANTINEOPLASTIC AGENTS [Suspect]
     Dates: start: 20080116
  2. AREDIA [Suspect]
     Dates: start: 20080116

REACTIONS (2)
  - CARDIOTOXICITY [None]
  - CHILLS [None]
